FAERS Safety Report 8393041-3 (Version None)
Quarter: 2012Q2

REPORT INFORMATION
  Report Type: 
  Country: None (occurrence: None)
  Receive Date: 20120529
  Receipt Date: 20120323
  Transmission Date: 20120825
  Serious: No
  Sender: FDA-Public Use
  Company Number: US-ABBOTT-12P-163-0916996-00

PATIENT
  Sex: Male
  Weight: 77.18 kg

DRUGS (4)
  1. RESTASIS [Concomitant]
     Indication: SWOLLEN TEAR DUCT
  2. ANDROGEL [Suspect]
     Indication: BLOOD TESTOSTERONE DECREASED
     Dosage: 2.5 PUMPS DAILY
     Route: 061
     Dates: start: 20110701
  3. ANDROGEL [Suspect]
     Indication: BLOOD TESTOSTERONE DECREASED
     Route: 061
     Dates: start: 20100401, end: 20110701
  4. CELEBREX [Concomitant]
     Indication: RHEUMATOID ARTHRITIS

REACTIONS (2)
  - SINUSITIS [None]
  - DRUG ADMINISTERED AT INAPPROPRIATE SITE [None]
